FAERS Safety Report 10235667 (Version 1)
Quarter: 2014Q1

REPORT INFORMATION
  Report Type: Spontaneous
  Country: US (occurrence: None)
  Receive Date: 20140306
  Receipt Date: 20140306
  Transmission Date: 20141002
  Serious: Yes (Other)
  Sender: FDA-Public Use
  Company Number: 163-21880-13042531

PATIENT
  Age: 58 Year
  Sex: Female
  Weight: 101.2 kg

DRUGS (10)
  1. REVLIMID(LENALIDOMIDE)(25 MILLIGRAM, CAPSULES) [Suspect]
     Indication: PLASMA CELL MYELOMA
     Dosage: 25 MG, 21 IN 28 D, PO
     Route: 048
     Dates: start: 20130219
  2. DEXAMETHASONE(DEXAMETHASONE)(TABLETS) [Suspect]
     Route: 048
  3. ZOMETA(ZOLEDRONIC ACID) [Concomitant]
  4. SYNTHROID(LEVOTHYROXINE SODIUM)(TABLETS) [Concomitant]
  5. FLUOXETINE [Concomitant]
  6. ZOMETA(ZOLEDRONIE ACID)(UKNOWN) [Concomitant]
  7. SYNTHROID(LEVOTHYROXINE SODIUM)(TABLETS) [Concomitant]
  8. FLUOXETINE HCL(FLUOXETINE HYDROCHLORIDE)(CAPSULES) [Concomitant]
  9. METFORMIN HCL (METFORMIN HYDROCHLORIDE)(TABLETS) [Concomitant]
  10. LISINOPRIL(LISINOPRIL)(TABLETS) [Concomitant]

REACTIONS (6)
  - Blood glucose increased [None]
  - Paraesthesia [None]
  - Weight increased [None]
  - Oedema peripheral [None]
  - Hypoaesthesia [None]
  - Hypotension [None]
